FAERS Safety Report 4289516-9 (Version None)
Quarter: 2004Q1

REPORT INFORMATION
  Report Type: 
  Country: None (occurrence: None)
  Receive Date: 20040113
  Receipt Date: 20030321
  Transmission Date: 20041129
  Serious: Yes (Hospitalization)
  Sender: FDA-Public Use
  Company Number: 2003010481

PATIENT
  Sex: Female

DRUGS (5)
  1. DIFLUCAN [Suspect]
     Indication: OESOPHAGEAL CANDIDIASIS
     Dosage: 100 MG (DAILY)
     Dates: start: 20030201, end: 20030301
  2. ESOMEPRAZOLE (ESOMEPRAZOLE) [Suspect]
     Indication: ILL-DEFINED DISORDER
     Dates: start: 20030201, end: 20030101
  3. SUCRALFATE [Suspect]
     Indication: STOMACH DISCOMFORT
  4. FLUTICASONE PROPIONATE [Suspect]
     Indication: ILL-DEFINED DISORDER
  5. ALLEGRA-D (PSEUDOEPHEDRINE HYDROCHLORIDE, FEXOFENADINE [Concomitant]

REACTIONS (6)
  - CONSTIPATION [None]
  - DIARRHOEA [None]
  - DRUG INTERACTION [None]
  - FUNGAL INFECTION [None]
  - GASTROINTESTINAL DISORDER [None]
  - PHARYNGOLARYNGEAL PAIN [None]
